FAERS Safety Report 6988115-5 (Version None)
Quarter: 2010Q3

REPORT INFORMATION
  Report Type: 
  Country: None (occurrence: None)
  Receive Date: 20100916
  Receipt Date: 20100906
  Transmission Date: 20110219
  Serious: Yes (Other)
  Sender: FDA-Public Use
  Company Number: B0673782A

PATIENT
  Age: 77 Year
  Sex: Male

DRUGS (8)
  1. VENTOLIN [Suspect]
     Indication: ASTHMA
     Route: 055
  2. BIPRETERAX [Concomitant]
  3. LERCANIDIPINE [Concomitant]
  4. PREVISCAN [Concomitant]
  5. HEMIGOXINE [Concomitant]
     Indication: CARDIOVASCULAR DISORDER
  6. LEVOTHYROXINE SODIUM [Concomitant]
  7. ARICEPT [Concomitant]
  8. ZOLOFT [Concomitant]

REACTIONS (3)
  - DRUG DEPENDENCE [None]
  - OFF LABEL USE [None]
  - OVERDOSE [None]
